FAERS Safety Report 19457851 (Version 1)
Quarter: 2021Q2

REPORT INFORMATION
  Report Type: Spontaneous
  Country: US (occurrence: US)
  Receive Date: 20210624
  Receipt Date: 20210624
  Transmission Date: 20210717
  Serious: No
  Sender: FDA-Public Use
  Company Number: NVSC2021US138259

PATIENT
  Sex: Female

DRUGS (2)
  1. TAFINLAR [Suspect]
     Active Substance: DABRAFENIB MESYLATE
     Indication: ILLNESS
     Dosage: 150 MG, Q12H
     Route: 048
     Dates: start: 202105
  2. MEKINIST [Suspect]
     Active Substance: TRAMETINIB DIMETHYL SULFOXIDE
     Indication: ILLNESS
     Dosage: 2 MG, QD
     Route: 048
     Dates: start: 202105

REACTIONS (2)
  - Joint swelling [Recovering/Resolving]
  - Product use in unapproved indication [Unknown]
